FAERS Safety Report 17162448 (Version 1)
Quarter: 2019Q4

REPORT INFORMATION
  Report Type: Spontaneous
  Country: US (occurrence: US)
  Receive Date: 20191122
  Receipt Date: 20191122
  Transmission Date: 20200122
  Serious: Yes (Hospitalization, Other)
  Sender: FDA-Public Use
  Company Number: None

PATIENT
  Sex: Male

DRUGS (26)
  1. IBUFROPEN [Concomitant]
  2. POT CITRATE [Concomitant]
     Active Substance: POTASSIUM CITRATE
  3. TESTOST CYP [Concomitant]
     Active Substance: TESTOSTERONE CYPIONATE
  4. XOLAIR [Suspect]
     Active Substance: OMALIZUMAB
     Indication: TESTICULAR FAILURE
     Dosage: ?          OTHER FREQUENCY:Q4WKS;?
     Route: 058
     Dates: start: 20160620
  5. BRIVIACT [Concomitant]
     Active Substance: BRIVARACETAM
  6. SUTALOL HCL [Concomitant]
  7. DIVALPROEX [Concomitant]
     Active Substance: DIVALPROEX SODIUM
  8. ELIQUIS ST P [Concomitant]
  9. FUROSEMIDE. [Concomitant]
     Active Substance: FUROSEMIDE
  10. RANITIDINE. [Concomitant]
     Active Substance: RANITIDINE
  11. NOMETASONE [Concomitant]
  12. PREDNISONE. [Concomitant]
     Active Substance: PREDNISONE
  13. CARBAMAZEPIN [Concomitant]
     Active Substance: CARBAMAZEPINE
  14. MONTELUKAST [Concomitant]
     Active Substance: MONTELUKAST SODIUM
  15. VIMPAT [Concomitant]
     Active Substance: LACOSAMIDE
  16. ZOCOR [Concomitant]
     Active Substance: SIMVASTATIN
  17. ASPIRIN. [Concomitant]
     Active Substance: ASPIRIN
  18. BENZONATE [Concomitant]
     Active Substance: BENZONATATE
  19. BUDESONIDE. [Concomitant]
     Active Substance: BUDESONIDE
  20. ELIQUIS [Concomitant]
     Active Substance: APIXABAN
  21. HYOSCYAMINE. [Concomitant]
     Active Substance: HYOSCYAMINE
  22. POT CL MICRO [Concomitant]
  23. ATORVASTATIN [Concomitant]
     Active Substance: ATORVASTATIN
  24. ASPIRIN. [Concomitant]
     Active Substance: ASPIRIN
  25. BREOELLIPIA INH [Concomitant]
  26. UROCIT-K [Concomitant]
     Active Substance: POTASSIUM CITRATE

REACTIONS (4)
  - Cerebrovascular accident [None]
  - Cardiac operation [None]
  - Aortic valve replacement [None]
  - Hepatotoxicity [None]
